FAERS Safety Report 18629697 (Version 1)
Quarter: 2020Q4

REPORT INFORMATION
  Report Type: Spontaneous
  Country: GB (occurrence: GB)
  Receive Date: 20201217
  Receipt Date: 20201217
  Transmission Date: 20210114
  Serious: Yes (Other)
  Sender: FDA-Public Use
  Company Number: GB-PERRIGO-20GB017479

PATIENT

DRUGS (6)
  1. MONTELUKAST [Concomitant]
     Active Substance: MONTELUKAST SODIUM
     Dosage: AT NIGHT.
     Dates: start: 20201028
  2. CAPASAL [Concomitant]
     Dosage: USE UP TO ONCE A DAY.
     Dates: start: 20170428, end: 20201015
  3. ROZEX (METRONIDAZOLE) [Concomitant]
     Active Substance: METRONIDAZOLE
     Dosage: APPLY
     Dates: start: 20190807
  4. LORATADINE. [Suspect]
     Active Substance: LORATADINE
     Indication: PRODUCT USED FOR UNKNOWN INDICATION
     Route: 065
     Dates: start: 20201120
  5. CLENIL MODULITE [Concomitant]
     Active Substance: BECLOMETHASONE DIPROPIONATE
     Dosage: RINSE MOUTH AND GARGLE.
     Route: 055
     Dates: start: 20200131
  6. VENTOLIN [Concomitant]
     Active Substance: ALBUTEROL SULFATE
     Dosage: 2 DF, PRN
     Route: 055
     Dates: start: 20200131

REACTIONS (3)
  - Blister [Unknown]
  - Swelling face [Unknown]
  - Dermatitis bullous [Recovering/Resolving]

NARRATIVE: CASE EVENT DATE: 20201120
